FAERS Safety Report 6344679-6 (Version None)
Quarter: 2009Q3

REPORT INFORMATION
  Report Type: 
  Country: None (occurrence: None)
  Receive Date: 20090908
  Receipt Date: 20090903
  Transmission Date: 20100115
  Serious: Yes (Hospitalization)
  Sender: FDA-Public Use
  Company Number: US-GENENTECH-288924

PATIENT
  Sex: Male

DRUGS (5)
  1. AVASTIN [Suspect]
     Indication: COLORECTAL CANCER METASTATIC
     Dosage: UNK, Q2W
     Route: 042
     Dates: start: 20090210, end: 20090331
  2. IRINOTECAN HCL [Suspect]
     Indication: COLORECTAL CANCER METASTATIC
     Dosage: UNK
     Dates: start: 20090210
  3. FLUOROURACIL [Concomitant]
     Indication: COLORECTAL CANCER METASTATIC
     Dosage: UNK
  4. LEUCOVORIN CALCIUM [Concomitant]
     Indication: COLORECTAL CANCER METASTATIC
     Dosage: UNK
  5. ANTI HYPERTENSIVE MEDS [Concomitant]
     Indication: HYPERTENSION
     Dosage: UNK
     Dates: end: 20090401

REACTIONS (3)
  - CONSTIPATION [None]
  - GASTROINTESTINAL PERFORATION [None]
  - SEPSIS [None]
